FAERS Safety Report 14289357 (Version 1)
Quarter: 2017Q4

REPORT INFORMATION
  Report Type: Spontaneous
  Country: CA (occurrence: CA)
  Receive Date: 20171214
  Receipt Date: 20171214
  Transmission Date: 20180321
  Serious: Yes (Other)
  Sender: FDA-Public Use
  Company Number: CA-PFIZER INC-2017524167

PATIENT
  Sex: Female

DRUGS (1)
  1. XELJANZ [Suspect]
     Active Substance: TOFACITINIB CITRATE

REACTIONS (5)
  - Central obesity [Unknown]
  - Cushing^s syndrome [Unknown]
  - Muscle atrophy [Unknown]
  - Sebaceous glands overactivity [Unknown]
  - Erythema [Unknown]
